FAERS Safety Report 8082926-3 (Version None)
Quarter: 2012Q1

REPORT INFORMATION
  Report Type: 
  Country: None (occurrence: None)
  Receive Date: 20120127
  Receipt Date: 20110308
  Transmission Date: 20120608
  Serious: No
  Sender: FDA-Public Use
  Company Number: US-ABBOTT-11P-163-0710125-00

PATIENT
  Age: 41 Year
  Sex: Female

DRUGS (7)
  1. MULTI-VITAMIN [Concomitant]
     Indication: PRODUCT USED FOR UNKNOWN INDICATION
     Dosage: DAILY
  2. CALCIUM [Concomitant]
     Indication: PRODUCT USED FOR UNKNOWN INDICATION
     Dosage: DAILY
  3. METHOTREXATE [Concomitant]
     Indication: CROHN'S DISEASE
  4. HUMIRA [Suspect]
     Indication: CROHN'S DISEASE
     Dates: start: 20110131
  5. FOLIC ACID [Concomitant]
     Indication: PRODUCT USED FOR UNKNOWN INDICATION
     Dosage: DAILY
  6. HUMIRA [Suspect]
     Indication: CROHN'S DISEASE
     Dates: start: 20101129, end: 20110131
  7. NUVARING [Concomitant]
     Indication: CONTRACEPTION

REACTIONS (6)
  - INJECTION SITE ERYTHEMA [None]
  - INJECTION SITE WARMTH [None]
  - INJECTION SITE PAIN [None]
  - INJECTION SITE URTICARIA [None]
  - INJECTION SITE PAPULE [None]
  - INJECTION SITE REACTION [None]
